FAERS Safety Report 20917350 (Version 1)
Quarter: 2022Q2

REPORT INFORMATION
  Report Type: Spontaneous
  Country: TW (occurrence: TW)
  Receive Date: 20220606
  Receipt Date: 20220606
  Transmission Date: 20220720
  Serious: Yes (Death, Hospitalization, Other)
  Sender: FDA-Public Use
  Company Number: TW-SA-SAC20220601001202

PATIENT
  Age: 84 Year
  Sex: Male

DRUGS (1)
  1. DUPIXENT [Suspect]
     Active Substance: DUPILUMAB
     Indication: Senile pruritus
     Dosage: 300 MG, QOW
     Route: 058

REACTIONS (2)
  - Pneumonia [Fatal]
  - Product use in unapproved indication [Unknown]
